FAERS Safety Report 6817336-7 (Version None)
Quarter: 2010Q3

REPORT INFORMATION
  Report Type: 
  Country: None (occurrence: None)
  Receive Date: 20100706
  Receipt Date: 20100629
  Transmission Date: 20110219
  Serious: Yes (Death, Hospitalization)
  Sender: FDA-Public Use
  Company Number: US-BAXTER-2010BH017113

PATIENT
  Age: 3 Month

DRUGS (1)
  1. DIANEAL [Suspect]
     Indication: PERITONEAL DIALYSIS
     Route: 033
     Dates: start: 20100101, end: 20100609

REACTIONS (3)
  - CEREBROVASCULAR ACCIDENT [None]
  - RESPIRATORY FAILURE [None]
  - SEPSIS [None]
